FAERS Safety Report 5905180-4 (Version None)
Quarter: 2008Q3

REPORT INFORMATION
  Report Type: 
  Country: None (occurrence: None)
  Receive Date: 20080909
  Receipt Date: 20071026
  Transmission Date: 20090109
  Serious: Yes (Hospitalization)
  Sender: FDA-Public Use
  Company Number: 163-20785-07101589

PATIENT
  Age: 64 Year
  Sex: Female

DRUGS (19)
  1. THALOMID [Suspect]
     Indication: MULTIPLE MYELOMA
     Dosage: 100 MG, 2 IN 1 D, ORAL
     Route: 048
     Dates: start: 20071022
  2. DEXAMETHASONE TAB [Concomitant]
  3. VELCADE [Concomitant]
  4. MELPHALAN (MELPHALAN) [Concomitant]
  5. LOVENOX [Concomitant]
  6. PANTOPRAZOLE SODIUM [Concomitant]
  7. ONDANSETRON HCL (ONDANSETRON HYDROCHLORIDE) [Concomitant]
  8. METRONIDAZOLE [Concomitant]
  9. PRIMAXIN (PRIMAXIN) [Concomitant]
  10. AMPHOTERICIN B [Concomitant]
  11. REGLAN [Concomitant]
  12. ZOLPIDEM TARTRATE [Concomitant]
  13. OXYCODONE HCL [Concomitant]
  14. SUCRALFATE [Concomitant]
  15. ACYCLOVIR [Concomitant]
  16. LEVAQUIN [Concomitant]
  17. VERAPAMIL [Concomitant]
  18. FOLIC ACID [Concomitant]
  19. MULTIVITAMIN [Concomitant]

REACTIONS (2)
  - HYPERCALCAEMIA [None]
  - RENAL FAILURE ACUTE [None]
